FAERS Safety Report 8948357 (Version 1)
Quarter: 2012Q4

REPORT INFORMATION
  Report Type: 
  Country: US (occurrence: US)
  Receive Date: 20121206
  Receipt Date: 20121206
  Transmission Date: 20130627
  Serious: Yes (Other)
  Sender: FDA-Public Use
  Company Number: PHHY2012US110548

PATIENT
  Age: 7 Year
  Sex: Female
  Weight: 20 kg

DRUGS (4)
  1. RITALIN [Suspect]
     Dosage: 25 DF, ONCE/SINGLE
  2. MIDAZOLAM [Concomitant]
     Dosage: 0.1 mg/kg, UNK
     Route: 042
  3. MIDAZOLAM [Concomitant]
     Dosage: 1.5 mg/kg, UNK
     Route: 042
  4. MIDAZOLAM [Concomitant]
     Dosage: 1.6 mg/kg, UNK
     Route: 042

REACTIONS (8)
  - Toxicity to various agents [Recovered/Resolved]
  - Hypertension [Recovered/Resolved]
  - Logorrhoea [Recovered/Resolved]
  - Agitation [Recovered/Resolved]
  - Psychomotor hyperactivity [Recovered/Resolved]
  - Hallucination [Recovered/Resolved]
  - Tachycardia [Recovered/Resolved]
  - Incorrect dose administered [Unknown]
